FAERS Safety Report 14744910 (Version 4)
Quarter: 2018Q2

REPORT INFORMATION
  Report Type: Report from Study
  Country: JP (occurrence: JP)
  Receive Date: 20180411
  Receipt Date: 20180625
  Transmission Date: 20180711
  Serious: Yes (Hospitalization, Other)
  Sender: FDA-Public Use
  Company Number: JP-ROCHE-2044054

PATIENT
  Age: 74 Year
  Sex: Female
  Weight: 44.5 kg

DRUGS (49)
  1. PEMETREXED. [Suspect]
     Active Substance: PEMETREXED
     Indication: NON-SMALL CELL LUNG CANCER
     Dosage: DATE OF MOST RECENT DOSE OF PEMETREXED PRIOR TO FIRST OCCURRENCE OF HYPONATREMIA ONSET 06 DEC 2017?5
     Route: 042
     Dates: start: 20171206
  2. MAGMITT [Concomitant]
     Active Substance: MAGNESIUM OXIDE
     Indication: CONSTIPATION
     Route: 065
     Dates: start: 2016
  3. MANNITOL. [Concomitant]
     Active Substance: MANNITOL
     Route: 065
     Dates: start: 20171206, end: 20171206
  4. EMEND [Concomitant]
     Active Substance: APREPITANT
     Route: 065
     Dates: start: 20171227, end: 20171229
  5. EMEND [Concomitant]
     Active Substance: APREPITANT
     Route: 065
     Dates: start: 20180117, end: 20180119
  6. NOVAMIN (JAPAN) [Concomitant]
     Route: 065
     Dates: start: 20180213, end: 20180219
  7. BROTIZOLAM [Concomitant]
     Active Substance: BROTIZOLAM
     Indication: INSOMNIA
     Route: 065
     Dates: start: 20171221, end: 20171230
  8. SENNOSIDE [Concomitant]
     Active Substance: SENNOSIDES
     Route: 065
     Dates: start: 20180407, end: 20180407
  9. FUROSEMIDE. [Concomitant]
     Active Substance: FUROSEMIDE
     Route: 065
     Dates: start: 20180119, end: 20180119
  10. LACTEC [Concomitant]
     Active Substance: CALCIUM CHLORIDE ANHYDROUS\POTASSIUM CHLORIDE\SODIUM CHLORIDE\SODIUM LACTATE
     Indication: NASOPHARYNGITIS
     Route: 065
     Dates: start: 20180330, end: 20180330
  11. AMALUET [Concomitant]
     Active Substance: AMLODIPINE BESYLATE\ATORVASTATIN CALCIUM
     Indication: HYPERLIPIDAEMIA
  12. ZOPICLONE [Concomitant]
     Active Substance: ZOPICLONE
     Indication: INSOMNIA
     Route: 065
     Dates: start: 20170922
  13. FOLIAMIN [Concomitant]
     Active Substance: FOLIC ACID
     Dosage: SIDE EFFECTS PREVENTION OF PEMETREXED
     Route: 065
     Dates: start: 20171125
  14. EMEND [Concomitant]
     Active Substance: APREPITANT
     Route: 065
     Dates: start: 20180207, end: 20180209
  15. NOVAMIN (JAPAN) [Concomitant]
     Indication: DECREASED APPETITE
     Route: 065
     Dates: start: 20171206, end: 20171210
  16. NOVAMIN (JAPAN) [Concomitant]
     Route: 065
     Dates: start: 20180207, end: 20180211
  17. MANNITOL. [Concomitant]
     Active Substance: MANNITOL
     Route: 065
     Dates: start: 20180117, end: 20180117
  18. PREDONINE [Concomitant]
     Active Substance: PREDNISOLONE
     Route: 065
  19. ATEZOLIZUMAB. [Suspect]
     Active Substance: ATEZOLIZUMAB
     Indication: NON-SMALL CELL LUNG CANCER
     Dosage: FOR TOTAL OF SIXTEEN 21 DAY CYCLE
     Route: 042
     Dates: start: 20180323
  20. LOXOPROFEN NA [Concomitant]
     Active Substance: LOXOPROFEN SODIUM
     Indication: MUSCULOSKELETAL STIFFNESS
     Route: 065
     Dates: start: 201610
  21. ALOXI [Concomitant]
     Active Substance: PALONOSETRON HYDROCHLORIDE
     Route: 065
     Dates: start: 20171227, end: 20171227
  22. ALOXI [Concomitant]
     Active Substance: PALONOSETRON HYDROCHLORIDE
     Route: 065
     Dates: start: 20180117, end: 20180117
  23. LASIX [Concomitant]
     Active Substance: FUROSEMIDE
     Indication: POLYURIA
     Route: 065
     Dates: start: 20171206, end: 20171206
  24. EDIROL [Concomitant]
     Active Substance: ELDECALCITOL
     Indication: OSTEOPOROSIS
     Route: 065
     Dates: start: 20180124, end: 20180411
  25. ALOXI [Concomitant]
     Active Substance: PALONOSETRON HYDROCHLORIDE
     Route: 065
     Dates: start: 20180207, end: 20180207
  26. MANNITOL. [Concomitant]
     Active Substance: MANNITOL
     Route: 065
     Dates: start: 20180207, end: 20180207
  27. METHYCOBAL [Concomitant]
     Active Substance: METHYLCOBALAMIN
     Route: 065
     Dates: start: 20171124, end: 20171124
  28. ZOLPIDEM TARTRATE. [Concomitant]
     Active Substance: ZOLPIDEM TARTRATE
     Indication: INSOMNIA
     Route: 065
     Dates: start: 20171225, end: 20180401
  29. SENNOSIDE [Concomitant]
     Active Substance: SENNOSIDES
     Route: 065
     Dates: start: 20180210, end: 20180210
  30. AMBROXOL HYDROCHLORIDE [Concomitant]
     Active Substance: AMBROXOL HYDROCHLORIDE
     Indication: NASOPHARYNGITIS
     Route: 065
     Dates: start: 20180330, end: 20180413
  31. ALOXI [Concomitant]
     Active Substance: PALONOSETRON HYDROCHLORIDE
     Route: 065
     Dates: start: 20171206, end: 20171206
  32. LASIX [Concomitant]
     Active Substance: FUROSEMIDE
     Route: 065
     Dates: start: 20180207, end: 20180207
  33. BROTIZOLAM [Concomitant]
     Active Substance: BROTIZOLAM
     Route: 065
     Dates: start: 20180403
  34. CALONAL [Concomitant]
     Active Substance: ACETAMINOPHEN
     Indication: NASOPHARYNGITIS
     Route: 065
     Dates: start: 20180330, end: 20180401
  35. AZUNOL [Concomitant]
     Active Substance: SODIUM GUALENATE
     Route: 065
     Dates: start: 20180405, end: 20180412
  36. CISPLATIN. [Suspect]
     Active Substance: CISPLATIN
     Indication: NON-SMALL CELL LUNG CANCER
     Dosage: DATE OF MOST RECENT DOSE OF CISPLATIN PRIOR TO FIRST OCCURENCE OF HYPONATREMIA ONSET 06 DEC 2017?75
     Route: 042
     Dates: start: 20171206
  37. AMALUET [Concomitant]
     Active Substance: AMLODIPINE BESYLATE\ATORVASTATIN CALCIUM
     Indication: HYPERTENSION
     Route: 065
     Dates: start: 2008
  38. ASVERIN (TIPEPIDINE HIBENZATE) [Concomitant]
     Active Substance: TIPEPIDINE HIBENZATE
     Indication: COUGH
     Route: 065
     Dates: start: 20171005
  39. EMEND [Concomitant]
     Active Substance: APREPITANT
     Route: 065
     Dates: start: 20171206, end: 20171208
  40. NOVAMIN (JAPAN) [Concomitant]
     Route: 065
     Dates: start: 20171227, end: 20171231
  41. MANNITOL. [Concomitant]
     Active Substance: MANNITOL
     Route: 065
     Dates: start: 20171227, end: 20171227
  42. LASIX [Concomitant]
     Active Substance: FUROSEMIDE
     Route: 065
     Dates: start: 20180117, end: 20180117
  43. POLARAMINE [Concomitant]
     Active Substance: DEXCHLORPHENIRAMINE MALEATE
     Dosage: 1A DIV. RECOVERY TREND.
     Route: 065
  44. BAYASPIRIN [Concomitant]
     Active Substance: ASPIRIN
     Indication: LACUNAR INFARCTION
     Route: 065
     Dates: start: 2003
  45. LOXOPROFEN NA [Concomitant]
     Active Substance: LOXOPROFEN SODIUM
     Route: 065
     Dates: start: 20180403, end: 20180405
  46. NOVAMIN (JAPAN) [Concomitant]
     Route: 065
     Dates: start: 20180117, end: 20180121
  47. LASIX [Concomitant]
     Active Substance: FUROSEMIDE
     Route: 065
     Dates: start: 20171227, end: 20171227
  48. METHYCOBAL [Concomitant]
     Active Substance: METHYLCOBALAMIN
     Route: 065
     Dates: start: 20180120, end: 20180120
  49. SENNOSIDE [Concomitant]
     Active Substance: SENNOSIDES
     Indication: CONSTIPATION
     Route: 065
     Dates: start: 20180119, end: 20180119

REACTIONS (3)
  - Hyponatraemia [Recovered/Resolved]
  - Drug eruption [Recovered/Resolved]
  - Hyponatraemia [Recovered/Resolved]

NARRATIVE: CASE EVENT DATE: 20171218
